FAERS Safety Report 13328283 (Version 1)
Quarter: 2017Q1

REPORT INFORMATION
  Report Type: Spontaneous
  Country: US (occurrence: US)
  Receive Date: 20170310
  Receipt Date: 20170310
  Transmission Date: 20170428
  Serious: Yes (Life-Threatening, Hospitalization)
  Sender: FDA-Public Use
  Company Number: None

PATIENT
  Age: 78 Year
  Sex: Female
  Weight: 64.9 kg

DRUGS (13)
  1. XENAZINE [Concomitant]
     Active Substance: TETRABENAZINE
  2. JANUVIA [Concomitant]
     Active Substance: SITAGLIPTIN PHOSPHATE
  3. ESTROGENS (PREMARIN) [Concomitant]
  4. QUETIAPINE (SEROQUEL) [Concomitant]
  5. CANAGLIFOZIN (INVOKANA) [Concomitant]
  6. GLIMEPIRIDE (AMARYL) [Concomitant]
  7. REMERON [Concomitant]
     Active Substance: MIRTAZAPINE
  8. NYSTATIN (MYCOSTATIN) [Concomitant]
  9. INVOKANA [Suspect]
     Active Substance: CANAGLIFLOZIN
     Indication: TYPE 2 DIABETES MELLITUS
     Route: 048
     Dates: start: 20161223, end: 20170303
  10. LITHIUM CARBONATE (ESKALITH) [Concomitant]
  11. CYANOCOBALAMIN. [Concomitant]
     Active Substance: CYANOCOBALAMIN
  12. ELIQUIS [Concomitant]
     Active Substance: APIXABAN
  13. GLYCOPYRROLATE (ROBINUL) [Concomitant]

REACTIONS (1)
  - Diabetic ketoacidosis [None]

NARRATIVE: CASE EVENT DATE: 20170303
